FAERS Safety Report 16245794 (Version 1)
Quarter: 2019Q2

REPORT INFORMATION
  Report Type: Spontaneous
  Country: TW (occurrence: TW)
  Receive Date: 20190426
  Receipt Date: 20190426
  Transmission Date: 20190711
  Serious: Yes (Other)
  Sender: FDA-Public Use
  Company Number: TW-ELI_LILLY_AND_COMPANY-TW201904014185

PATIENT
  Age: 48 Year
  Sex: Male
  Weight: 78 kg

DRUGS (13)
  1. ERBITUX [Suspect]
     Active Substance: CETUXIMAB
     Indication: ORAL NEOPLASM
     Dosage: 600 MG, UNK
     Route: 042
     Dates: start: 20171027, end: 20180815
  2. KEMOPLAT [Concomitant]
     Active Substance: CISPLATIN
     Dosage: 80 MG, UNK
     Route: 041
     Dates: start: 20171028, end: 20180322
  3. KEMOPLAT [Concomitant]
     Active Substance: CISPLATIN
     Dosage: -1 UNK, WEEKLY (1/W)
     Route: 041
     Dates: start: 20170220, end: 20170327
  4. KEMOPLAT [Concomitant]
     Active Substance: CISPLATIN
     Dosage: 130 TO 150 MG
     Route: 041
     Dates: start: 20170531, end: 20170718
  5. 5 FU [Concomitant]
     Active Substance: FLUOROURACIL
     Indication: ORAL NEOPLASM
     Dosage: (1000MG/20ML/VIAL) 1100-1250MG
     Dates: start: 20161227, end: 20170503
  6. TAXOL [Concomitant]
     Active Substance: PACLITAXEL
     Indication: ORAL NEOPLASM
     Dosage: 150 MG, UNK
     Dates: start: 20180420, end: 20180728
  7. KEMOPLAT [Concomitant]
     Active Substance: CISPLATIN
     Indication: ORAL NEOPLASM
     Dosage: 80 MG
     Route: 041
     Dates: start: 20170220, end: 20170503
  8. TAXOTERE [Concomitant]
     Active Substance: DOCETAXEL
     Indication: ORAL NEOPLASM
     Dosage: 20 MG/1ML/VIAL (DOSE: 80 TO 120 MG).
     Dates: start: 20161227, end: 20170503
  9. TAXOTERE [Concomitant]
     Active Substance: DOCETAXEL
     Dosage: UNK
     Dates: start: 20180815
  10. OPDIVO [Concomitant]
     Active Substance: NIVOLUMAB
     Indication: ORAL NEOPLASM
     Dosage: 100 MG, UNK
     Route: 041
     Dates: start: 20171028, end: 20180322
  11. 5 FU [Concomitant]
     Active Substance: FLUOROURACIL
     Dosage: 1500 MG, UNK
     Route: 041
     Dates: start: 20170531, end: 20170718
  12. 5 FU [Concomitant]
     Active Substance: FLUOROURACIL
     Dosage: 1600 MG, UNK
     Dates: start: 20171028, end: 20180322
  13. KEMOPLAT [Concomitant]
     Active Substance: CISPLATIN
     Dosage: 80 TO 100 MG
     Dates: start: 20180420, end: 20180728

REACTIONS (9)
  - Alopecia [Unknown]
  - Pyrexia [Unknown]
  - Rash [Unknown]
  - Neuropathy peripheral [Unknown]
  - Dry mouth [Unknown]
  - Leukopenia [Unknown]
  - Stomatitis [Unknown]
  - Acne [Unknown]
  - Fatigue [Unknown]

NARRATIVE: CASE EVENT DATE: 2017
